FAERS Safety Report 9695770 (Version 1)
Quarter: 2013Q4

REPORT INFORMATION
  Report Type: Spontaneous
  Country: US (occurrence: None)
  Receive Date: 20131118
  Receipt Date: 20131118
  Transmission Date: 20140711
  Serious: Yes (Disabling)
  Sender: FDA-Public Use
  Company Number: None

PATIENT
  Age: 60 Year
  Sex: Female
  Weight: 71.22 kg

DRUGS (2)
  1. ADVAIR [Suspect]
  2. ATROVENT [Suspect]

REACTIONS (5)
  - Throat irritation [None]
  - Lung disorder [None]
  - Dyspnoea [None]
  - Dysphonia [None]
  - Oropharyngeal pain [None]
